FAERS Safety Report 8502117 (Version 2)
Quarter: 2013Q2

REPORT INFORMATION
  Report Type: Spontaneous
  Country: US (occurrence: US)
  Receive Date: 20120410
  Receipt Date: 20130429
  Transmission Date: 20140414
  Serious: Yes (Hospitalization)
  Sender: FDA-Public Use
  Company Number: US-GLAXOSMITHKLINE-A0794727A

PATIENT
  Age: 73 Year
  Sex: Male
  Weight: 90.9 kg

DRUGS (6)
  1. AVANDIA [Suspect]
     Indication: TYPE 2 DIABETES MELLITUS
     Dosage: 4MG TWICE PER DAY
     Route: 048
     Dates: start: 20050224, end: 20080101
  2. ELAVIL [Concomitant]
  3. CARDIZEM [Concomitant]
  4. METFORMIN [Concomitant]
  5. GLUCOTROL [Concomitant]
  6. LIPITOR [Concomitant]

REACTIONS (3)
  - Cardiac failure congestive [Unknown]
  - Atrial fibrillation [Unknown]
  - Sick sinus syndrome [Unknown]
